FAERS Safety Report 9511231 (Version 2)
Quarter: 2013Q4

REPORT INFORMATION
  Report Type: Spontaneous
  Country: FR (occurrence: FR)
  Receive Date: 20130910
  Receipt Date: 20131023
  Transmission Date: 20140711
  Serious: Yes (Death, Congenital Anomaly)
  Sender: FDA-Public Use
  Company Number: FR-UCBSA-096814

PATIENT
  Sex: Female

DRUGS (2)
  1. KEPPRA [Suspect]
     Indication: EPILEPSY
     Route: 064
     Dates: start: 20130415
  2. FOLIC ACID [Concomitant]
     Dosage: 5 MG
     Route: 064
     Dates: start: 20130415, end: 201308

REACTIONS (3)
  - Foetal malformation [Fatal]
  - Congenital genitourinary abnormality [Fatal]
  - Foetal exposure during pregnancy [Recovered/Resolved]
